FAERS Safety Report 14565352 (Version 2)
Quarter: 2018Q2

REPORT INFORMATION
  Report Type: Spontaneous
  Country: GB (occurrence: GB)
  Receive Date: 20180223
  Receipt Date: 20180425
  Transmission Date: 20180711
  Serious: Yes (Other)
  Sender: FDA-Public Use
  Company Number: GB-AMGEN-GBRSP2018023493

PATIENT
  Sex: Male
  Weight: 2.27 kg

DRUGS (8)
  1. FILGRASTIM [Suspect]
     Active Substance: FILGRASTIM
     Indication: EXPOSURE DURING PREGNANCY
     Dosage: 300 MUG, UNK
     Route: 064
  2. DAUNORUBICIN [Concomitant]
     Active Substance: DAUNORUBICIN
     Indication: EXPOSURE DURING PREGNANCY
     Dosage: 60 MG/M2, QD. ON DAYS 1, 3 AND 5
     Route: 064
  3. DAUNORUBICIN [Concomitant]
     Active Substance: DAUNORUBICIN
     Dosage: 50 MG/M2, QD ON DAYS 1, 3 AND 5;
     Route: 064
  4. AMPHOTERICIN B. [Concomitant]
     Active Substance: AMPHOTERICIN B
     Indication: EXPOSURE DURING PREGNANCY
     Dosage: UNK
     Route: 064
  5. MEROPENEM. [Concomitant]
     Active Substance: MEROPENEM
     Dosage: UNK
     Route: 064
  6. CYTARABINE. [Concomitant]
     Active Substance: CYTARABINE
     Indication: EXPOSURE DURING PREGNANCY
     Dosage: 100 MG/M2, PER 12 H DAYS 1-10
     Route: 064
  7. MEROPENEM. [Concomitant]
     Active Substance: MEROPENEM
     Indication: EXPOSURE DURING PREGNANCY
     Dosage: 1 G, Q8H
     Route: 064
  8. CYTARABINE. [Concomitant]
     Active Substance: CYTARABINE
     Dosage: 100 MG/M2, PER 12 H DAYS 1-8
     Route: 064

REACTIONS (3)
  - Low birth weight baby [Unknown]
  - Haemoglobin decreased [Unknown]
  - Premature baby [Unknown]
